FAERS Safety Report 5879424-1 (Version None)
Quarter: 2008Q3

REPORT INFORMATION
  Report Type: 
  Country: None (occurrence: None)
  Receive Date: 20080912
  Receipt Date: 20080903
  Transmission Date: 20090109
  Serious: Yes (Death, Other)
  Sender: FDA-Public Use
  Company Number: B0536083A

PATIENT

DRUGS (1)
  1. DIGOXIN [Suspect]

REACTIONS (2)
  - DEATH NEONATAL [None]
  - DRUG EXPOSURE DURING PREGNANCY [None]
